FAERS Safety Report 17885410 (Version 7)
Quarter: 2021Q4

REPORT INFORMATION
  Report Type: Report from Study
  Country: GR (occurrence: GR)
  Receive Date: 20200611
  Receipt Date: 20211005
  Transmission Date: 20220304
  Serious: Yes (Death, Disabling)
  Sender: FDA-Public Use
  Company Number: GR-MERCK HEALTHCARE KGAA-9167853

PATIENT
  Age: 59 Year
  Sex: Female
  Weight: 67 kg

DRUGS (7)
  1. AVELUMAB [Suspect]
     Active Substance: AVELUMAB
     Indication: Small cell lung cancer
     Dosage: 800 MG, CYCLIC (ONCE EVERY 14 DAYS)
     Route: 042
     Dates: start: 20200408, end: 20200514
  2. AVELUMAB [Suspect]
     Active Substance: AVELUMAB
     Dosage: 800 MG
     Route: 042
     Dates: start: 20200520, end: 20200520
  3. METHYLPREDNISOLONE [Suspect]
     Active Substance: METHYLPREDNISOLONE
     Indication: Arthralgia
     Dosage: 70 MG, DAILY
     Route: 048
     Dates: start: 20200525, end: 20200531
  4. CARBOPLATIN [Suspect]
     Active Substance: CARBOPLATIN
     Indication: Small cell lung cancer
     Dosage: 600 MG, EVERY 3 WEEKS (ONCE IN 21 DAYS)
     Route: 042
     Dates: start: 20200225, end: 20200520
  5. ETOPOSIDE [Suspect]
     Active Substance: ETOPOSIDE
     Indication: Small cell lung cancer
     Dosage: 180 MG, EVERY 3 WEEKS (ONCE IN 21 DAYS)
     Route: 042
     Dates: start: 20200225, end: 20200522
  6. AERIUS (DESLORATADINE) [Concomitant]
     Active Substance: DESLORATADINE
     Indication: Premedication
     Dosage: 5 MG, CYCLIC(ONCE IN 14 DAYS)
     Route: 048
     Dates: start: 20200408, end: 20200520
  7. ACETAMINOPHEN [Concomitant]
     Active Substance: ACETAMINOPHEN
     Indication: Premedication
     Dosage: 1 G, CYCLIC(ONCE IN 14 DAYS)
     Route: 048
     Dates: start: 20200408, end: 20200520

REACTIONS (2)
  - Immune-mediated arthritis [Not Recovered/Not Resolved]
  - Cardiac arrest [Fatal]

NARRATIVE: CASE EVENT DATE: 20200514
